FAERS Safety Report 4700017-3 (Version None)
Quarter: 2005Q2

REPORT INFORMATION
  Report Type: 
  Country: None (occurrence: None)
  Receive Date: 20050623
  Receipt Date: 20050609
  Transmission Date: 20051028
  Serious: Yes (Other)
  Sender: FDA-Public Use
  Company Number: 200313240BCC

PATIENT
  Age: 73 Year
  Sex: Male
  Weight: 93.8946 kg

DRUGS (4)
  1. ALEVE [Suspect]
     Indication: DEMENTIA ALZHEIMER'S TYPE
     Dosage: BID, ORAL
     Route: 048
     Dates: start: 20020125, end: 20020920
  2. ALEVE [Suspect]
     Indication: DEMENTIA ALZHEIMER'S TYPE
     Dosage: BID, ORAL
     Route: 048
     Dates: start: 20021020, end: 20021105
  3. HYTRIN [Concomitant]
     Indication: PROPHYLAXIS
  4. ASCORBIC ACID [Concomitant]

REACTIONS (8)
  - ATRIAL FIBRILLATION [None]
  - ATRIAL FLUTTER [None]
  - CARDIAC FAILURE CONGESTIVE [None]
  - ERYTHEMA [None]
  - HAEMOGLOBIN DECREASED [None]
  - SKIN INFLAMMATION [None]
  - SKIN LESION [None]
  - WEIGHT INCREASED [None]
